FAERS Safety Report 6077783-0 (Version None)
Quarter: 2009Q1

REPORT INFORMATION
  Report Type: 
  Country: None (occurrence: None)
  Receive Date: 20090126
  Receipt Date: 20081125
  Transmission Date: 20090719
  Serious: Yes (Hospitalization)
  Sender: FDA-Public Use
  Company Number: WAES 0812USA01654

PATIENT
  Age: 47 Year
  Sex: Male

DRUGS (1)
  1. PRIMAXIN [Suspect]
     Indication: RESPIRATORY TRACT INFECTION
     Dosage: IV
     Route: 042
     Dates: start: 20040215

REACTIONS (1)
  - CONVULSION [None]
